FAERS Safety Report 18014098 (Version 3)
Quarter: 2020Q3

REPORT INFORMATION
  Report Type: Spontaneous
  Country: LA (occurrence: LA)
  Receive Date: 20200713
  Receipt Date: 20200901
  Transmission Date: 20201103
  Serious: Yes (Hospitalization)
  Sender: FDA-Public Use
  Company Number: LA-JNJFOC-20200641844

PATIENT
  Age: 6 Year
  Sex: Male

DRUGS (1)
  1. FUGACAR [Suspect]
     Active Substance: MEBENDAZOLE
     Indication: HELMINTHIC INFECTION
     Route: 065
     Dates: start: 20200624

REACTIONS (10)
  - Hypomagnesaemia [Unknown]
  - Hypophosphataemia [Unknown]
  - Eye swelling [Not Recovered/Not Resolved]
  - Electrolyte imbalance [Unknown]
  - Diarrhoea [Unknown]
  - Septic shock [Unknown]
  - Duodenal ulcer haemorrhage [Unknown]
  - Pyrexia [Not Recovered/Not Resolved]
  - Lip swelling [Not Recovered/Not Resolved]
  - Rash pruritic [Recovered/Resolved]

NARRATIVE: CASE EVENT DATE: 2020
